FAERS Safety Report 6434012-3 (Version None)
Quarter: 2009Q4

REPORT INFORMATION
  Report Type: 
  Country: None (occurrence: None)
  Receive Date: 20091110
  Receipt Date: 20091103
  Transmission Date: 20100525
  Serious: Yes (Death, Hospitalization, Other)
  Sender: FDA-Public Use
  Company Number: PHHY2009BR39199

PATIENT
  Sex: Male

DRUGS (5)
  1. EXFORGE [Suspect]
     Indication: HYPERTENSION
     Dosage: 1 TABLET DAILY
     Route: 048
     Dates: start: 20020101
  2. STALEVO 100 [Suspect]
     Indication: PARKINSON'S DISEASE
     Dosage: 1 TABLET DAILY
     Route: 048
     Dates: start: 20040101
  3. EXELON [Suspect]
     Indication: DEMENTIA ALZHEIMER'S TYPE
     Dosage: 1 PATCH DAILY
     Route: 062
     Dates: start: 20060101, end: 20080101
  4. LUMIGAN [Concomitant]
     Indication: EYE DISORDER
     Dosage: UNK
  5. SEROQUEL [Concomitant]
     Dosage: 2 TABLETS DAILY

REACTIONS (6)
  - CARDIAC ARREST [None]
  - DEMENTIA ALZHEIMER'S TYPE [None]
  - DYSPNOEA [None]
  - KIDNEY INFECTION [None]
  - PNEUMONIA [None]
  - SEPTIC SHOCK [None]
